FAERS Safety Report 15757183 (Version 1)
Quarter: 2018Q4

REPORT INFORMATION
  Report Type: Spontaneous
  Country: US (occurrence: US)
  Receive Date: 20181224
  Receipt Date: 20181224
  Transmission Date: 20190205
  Serious: Yes (Life-Threatening)
  Sender: FDA-Public Use
  Company Number: None

PATIENT
  Age: 4 Year
  Sex: Female
  Weight: 17.55 kg

DRUGS (4)
  1. CLONODINE [Concomitant]
     Active Substance: CLONIDINE
  2. ONFI [Concomitant]
     Active Substance: CLOBAZAM
  3. EPIDIOLEX [Concomitant]
     Active Substance: CANNABIDIOL
  4. CLOBAZAM. [Suspect]
     Active Substance: CLOBAZAM
     Indication: EPILEPSY
     Dosage: ?          QUANTITY:120 ML;?
     Route: 048
     Dates: start: 20181028, end: 20181219

REACTIONS (3)
  - Generalised tonic-clonic seizure [None]
  - Product substitution issue [None]
  - Epilepsy [None]

NARRATIVE: CASE EVENT DATE: 20181101
